FAERS Safety Report 16280235 (Version 1)
Quarter: 2019Q2

REPORT INFORMATION
  Report Type: Spontaneous
  Country: US (occurrence: US)
  Receive Date: 20190507
  Receipt Date: 20190507
  Transmission Date: 20190711
  Serious: Yes (Other)
  Sender: FDA-Public Use
  Company Number: US-GLAXOSMITHKLINE-US2019079196

PATIENT
  Sex: Male

DRUGS (2)
  1. ARNUITY ELLIPTA [Suspect]
     Active Substance: FLUTICASONE FUROATE
     Indication: PRODUCT USED FOR UNKNOWN INDICATION
     Dosage: 1 PUFF(S), BID
     Route: 055
     Dates: start: 2018
  2. RESPIMAT (MEDICATION UNKNOWN) [Suspect]
     Active Substance: UNSPECIFIED INGREDIENT
     Indication: DYSPNOEA
     Dosage: UNK

REACTIONS (3)
  - Overdose [Unknown]
  - Intentional product misuse [Unknown]
  - Pneumonia [Recovered/Resolved]
